FAERS Safety Report 14745129 (Version 1)
Quarter: 2018Q2

REPORT INFORMATION
  Report Type: Spontaneous
  Country: SA (occurrence: SA)
  Receive Date: 20180411
  Receipt Date: 20180411
  Transmission Date: 20180711
  Serious: Yes (Hospitalization, Other)
  Sender: FDA-Public Use
  Company Number: SA-JNJFOC-20180343508

PATIENT

DRUGS (70)
  1. ACETAMINOPHEN. [Suspect]
     Active Substance: ACETAMINOPHEN
     Indication: HEADACHE
     Route: 065
  2. ACETAMINOPHEN. [Suspect]
     Active Substance: ACETAMINOPHEN
     Indication: CHEST PAIN
     Route: 065
  3. IBUPROFEN. [Suspect]
     Active Substance: IBUPROFEN
     Indication: HEADACHE
     Route: 065
  4. IBUPROFEN. [Suspect]
     Active Substance: IBUPROFEN
     Indication: PAIN
     Route: 065
  5. DICLOFENAC [Suspect]
     Active Substance: DICLOFENAC
     Indication: ARTHRALGIA
     Route: 065
  6. SOLPADEINE (ACETAMINOPHEN\CAFFEINE\CODEINE PHOSPHATE) [Suspect]
     Active Substance: ACETAMINOPHEN\CAFFEINE\CODEINE PHOSPHATE
     Indication: TOOTHACHE
     Route: 065
  7. SOLPADEINE (ACETAMINOPHEN\CAFFEINE\CODEINE PHOSPHATE) [Suspect]
     Active Substance: ACETAMINOPHEN\CAFFEINE\CODEINE PHOSPHATE
     Indication: RENAL COLIC
     Route: 065
  8. SOLPADEINE (ACETAMINOPHEN\CAFFEINE\CODEINE PHOSPHATE) [Suspect]
     Active Substance: ACETAMINOPHEN\CAFFEINE\CODEINE PHOSPHATE
     Indication: NEPHROLITHIASIS
     Route: 065
  9. SOLPADEINE (ACETAMINOPHEN\CAFFEINE\CODEINE PHOSPHATE) [Suspect]
     Active Substance: ACETAMINOPHEN\CAFFEINE\CODEINE PHOSPHATE
     Indication: DERMATITIS ALLERGIC
     Route: 065
  10. LYRICA [Suspect]
     Active Substance: PREGABALIN
     Indication: HEADACHE
     Route: 065
  11. LYRICA [Suspect]
     Active Substance: PREGABALIN
     Indication: TOOTHACHE
     Route: 065
  12. LYRICA [Suspect]
     Active Substance: PREGABALIN
     Indication: CHEST PAIN
     Route: 065
  13. ACETAMINOPHEN. [Suspect]
     Active Substance: ACETAMINOPHEN
     Indication: BILIARY COLIC
     Route: 065
  14. IBUPROFEN. [Suspect]
     Active Substance: IBUPROFEN
     Indication: CAESAREAN SECTION
     Route: 065
  15. DICLOFENAC [Suspect]
     Active Substance: DICLOFENAC
     Indication: BILIARY COLIC
     Route: 065
  16. SOLPADEINE (ACETAMINOPHEN\CAFFEINE\CODEINE PHOSPHATE) [Suspect]
     Active Substance: ACETAMINOPHEN\CAFFEINE\CODEINE PHOSPHATE
     Indication: CHEST PAIN
     Route: 065
  17. LYRICA [Suspect]
     Active Substance: PREGABALIN
     Indication: ARTHRALGIA
     Route: 065
  18. LYRICA [Suspect]
     Active Substance: PREGABALIN
     Indication: NEPHROLITHIASIS
     Route: 065
  19. BUSCOPAN [Suspect]
     Active Substance: BUTYLSCOPOLAMINE BROMIDE
     Indication: HEADACHE
     Route: 065
  20. BUSCOPAN [Suspect]
     Active Substance: BUTYLSCOPOLAMINE BROMIDE
     Indication: ARTHRALGIA
     Route: 065
  21. ACETAMINOPHEN. [Suspect]
     Active Substance: ACETAMINOPHEN
     Indication: DERMATITIS ALLERGIC
     Route: 065
  22. IBUPROFEN. [Suspect]
     Active Substance: IBUPROFEN
     Indication: CHEST PAIN
     Route: 065
  23. DICLOFENAC [Suspect]
     Active Substance: DICLOFENAC
     Indication: CAESAREAN SECTION
     Route: 065
  24. PANADOL EXTRA [Suspect]
     Active Substance: ACETAMINOPHEN\CAFFEINE
     Indication: NEPHROLITHIASIS
     Route: 065
  25. PANADOL EXTRA [Suspect]
     Active Substance: ACETAMINOPHEN\CAFFEINE
     Indication: DERMATITIS ALLERGIC
     Route: 065
  26. BUSCOPAN [Suspect]
     Active Substance: BUTYLSCOPOLAMINE BROMIDE
     Indication: PAIN
     Route: 065
  27. ACETAMINOPHEN. [Suspect]
     Active Substance: ACETAMINOPHEN
     Indication: TOOTHACHE
     Route: 065
  28. IBUPROFEN. [Suspect]
     Active Substance: IBUPROFEN
     Indication: DERMATITIS ALLERGIC
     Route: 065
  29. DICLOFENAC [Suspect]
     Active Substance: DICLOFENAC
     Indication: HEADACHE
     Route: 065
  30. PANADOL EXTRA [Suspect]
     Active Substance: ACETAMINOPHEN\CAFFEINE
     Indication: CAESAREAN SECTION
     Route: 065
  31. LYRICA [Suspect]
     Active Substance: PREGABALIN
     Indication: DERMATITIS ALLERGIC
     Route: 065
  32. ACETAMINOPHEN. [Suspect]
     Active Substance: ACETAMINOPHEN
     Indication: PAIN
     Route: 065
  33. ACETAMINOPHEN. [Suspect]
     Active Substance: ACETAMINOPHEN
     Indication: RENAL COLIC
     Route: 065
  34. IBUPROFEN. [Suspect]
     Active Substance: IBUPROFEN
     Indication: NEPHROLITHIASIS
     Route: 065
  35. DICLOFENAC [Suspect]
     Active Substance: DICLOFENAC
     Indication: PAIN
     Route: 065
  36. SOLPADEINE (ACETAMINOPHEN\CAFFEINE\CODEINE PHOSPHATE) [Suspect]
     Active Substance: ACETAMINOPHEN\CAFFEINE\CODEINE PHOSPHATE
     Indication: HEADACHE
     Route: 065
  37. PANADOL EXTRA [Suspect]
     Active Substance: ACETAMINOPHEN\CAFFEINE
     Indication: HEADACHE
     Route: 065
  38. BUSCOPAN [Suspect]
     Active Substance: BUTYLSCOPOLAMINE BROMIDE
     Indication: RENAL COLIC
     Route: 065
  39. BUSCOPAN [Suspect]
     Active Substance: BUTYLSCOPOLAMINE BROMIDE
     Indication: CAESAREAN SECTION
     Route: 065
  40. BUSCOPAN [Suspect]
     Active Substance: BUTYLSCOPOLAMINE BROMIDE
     Indication: DERMATITIS ALLERGIC
     Route: 065
  41. ACETAMINOPHEN. [Suspect]
     Active Substance: ACETAMINOPHEN
     Indication: CAESAREAN SECTION
     Route: 065
  42. IBUPROFEN. [Suspect]
     Active Substance: IBUPROFEN
     Indication: ARTHRALGIA
     Route: 065
  43. IBUPROFEN. [Suspect]
     Active Substance: IBUPROFEN
     Indication: TOOTHACHE
     Route: 065
  44. DICLOFENAC [Suspect]
     Active Substance: DICLOFENAC
     Indication: TOOTHACHE
     Route: 065
  45. SOLPADEINE (ACETAMINOPHEN\CAFFEINE\CODEINE PHOSPHATE) [Suspect]
     Active Substance: ACETAMINOPHEN\CAFFEINE\CODEINE PHOSPHATE
     Indication: ARTHRALGIA
     Route: 065
  46. SOLPADEINE (ACETAMINOPHEN\CAFFEINE\CODEINE PHOSPHATE) [Suspect]
     Active Substance: ACETAMINOPHEN\CAFFEINE\CODEINE PHOSPHATE
     Indication: PAIN
     Route: 065
  47. PANADOL EXTRA [Suspect]
     Active Substance: ACETAMINOPHEN\CAFFEINE
     Indication: PAIN
     Route: 065
  48. PANADOL EXTRA [Suspect]
     Active Substance: ACETAMINOPHEN\CAFFEINE
     Indication: RENAL COLIC
     Route: 065
  49. LYRICA [Suspect]
     Active Substance: PREGABALIN
     Indication: BILIARY COLIC
     Route: 065
  50. BUSCOPAN [Suspect]
     Active Substance: BUTYLSCOPOLAMINE BROMIDE
     Indication: CHEST PAIN
     Route: 065
  51. PANADOL EXTRA [Suspect]
     Active Substance: ACETAMINOPHEN\CAFFEINE
     Indication: BILIARY COLIC
     Route: 065
  52. PANADOL EXTRA [Suspect]
     Active Substance: ACETAMINOPHEN\CAFFEINE
     Indication: CHEST PAIN
     Route: 065
  53. LYRICA [Suspect]
     Active Substance: PREGABALIN
     Indication: RENAL COLIC
     Route: 065
  54. BUSCOPAN [Suspect]
     Active Substance: BUTYLSCOPOLAMINE BROMIDE
     Indication: TOOTHACHE
     Route: 065
  55. BUSCOPAN [Suspect]
     Active Substance: BUTYLSCOPOLAMINE BROMIDE
     Indication: BILIARY COLIC
     Route: 065
  56. BUSCOPAN [Suspect]
     Active Substance: BUTYLSCOPOLAMINE BROMIDE
     Indication: NEPHROLITHIASIS
     Route: 065
  57. ACETAMINOPHEN. [Suspect]
     Active Substance: ACETAMINOPHEN
     Indication: ARTHRALGIA
     Route: 065
  58. ACETAMINOPHEN. [Suspect]
     Active Substance: ACETAMINOPHEN
     Indication: NEPHROLITHIASIS
     Route: 065
  59. IBUPROFEN. [Suspect]
     Active Substance: IBUPROFEN
     Indication: BILIARY COLIC
     Route: 065
  60. IBUPROFEN. [Suspect]
     Active Substance: IBUPROFEN
     Indication: RENAL COLIC
     Route: 065
  61. DICLOFENAC [Suspect]
     Active Substance: DICLOFENAC
     Indication: RENAL COLIC
     Route: 065
  62. DICLOFENAC [Suspect]
     Active Substance: DICLOFENAC
     Indication: CHEST PAIN
     Route: 065
  63. DICLOFENAC [Suspect]
     Active Substance: DICLOFENAC
     Indication: NEPHROLITHIASIS
     Route: 065
  64. DICLOFENAC [Suspect]
     Active Substance: DICLOFENAC
     Indication: DERMATITIS ALLERGIC
     Route: 065
  65. SOLPADEINE (ACETAMINOPHEN\CAFFEINE\CODEINE PHOSPHATE) [Suspect]
     Active Substance: ACETAMINOPHEN\CAFFEINE\CODEINE PHOSPHATE
     Indication: BILIARY COLIC
     Route: 065
  66. SOLPADEINE (ACETAMINOPHEN\CAFFEINE\CODEINE PHOSPHATE) [Suspect]
     Active Substance: ACETAMINOPHEN\CAFFEINE\CODEINE PHOSPHATE
     Indication: CAESAREAN SECTION
     Route: 065
  67. PANADOL EXTRA [Suspect]
     Active Substance: ACETAMINOPHEN\CAFFEINE
     Indication: ARTHRALGIA
     Route: 065
  68. PANADOL EXTRA [Suspect]
     Active Substance: ACETAMINOPHEN\CAFFEINE
     Indication: TOOTHACHE
     Route: 065
  69. LYRICA [Suspect]
     Active Substance: PREGABALIN
     Indication: PAIN
     Route: 065
  70. LYRICA [Suspect]
     Active Substance: PREGABALIN
     Indication: CAESAREAN SECTION
     Route: 065

REACTIONS (15)
  - Headache [Unknown]
  - Product use in unapproved indication [Unknown]
  - Vomiting [Unknown]
  - Rash [Unknown]
  - Abdominal pain upper [Unknown]
  - Diarrhoea [Unknown]
  - Hypertension [Unknown]
  - Gastric ulcer [Unknown]
  - Nausea [Unknown]
  - Dyspnoea [Unknown]
  - Insomnia [Unknown]
  - Constipation [Unknown]
  - Renal colic [Unknown]
  - Vertigo [Unknown]
  - Jaundice [Unknown]
